FAERS Safety Report 18450885 (Version 1)
Quarter: 2020Q4

REPORT INFORMATION
  Report Type: Spontaneous
  Country: CH (occurrence: CH)
  Receive Date: 20201102
  Receipt Date: 20201102
  Transmission Date: 20210114
  Serious: Yes (Other)
  Sender: FDA-Public Use
  Company Number: CH-ASTRAZENECA-2020SF35263

PATIENT
  Age: 77 Year
  Sex: Female

DRUGS (8)
  1. ZOLPIDEM AXAPHARM [Concomitant]
  2. PREDNISOLONE. [Concomitant]
     Active Substance: PREDNISOLONE
  3. IMFINZI [Suspect]
     Active Substance: DURVALUMAB
     Route: 041
     Dates: start: 20200406, end: 20200723
  4. ASPIRIN CARDIO [Concomitant]
     Active Substance: ASPIRIN
  5. CALCIMAGON D3 [Concomitant]
     Active Substance: CALCIUM\CHOLECALCIFEROL
  6. SALAZOPYRIN [Concomitant]
     Active Substance: SULFASALAZINE
     Indication: PAIN
     Dosage: CURRENTLY DOSED AT 1 GR, WHICH HAVE INCREASED TO 1.5 GR/DAY
  7. COVERSUM COMBI [Concomitant]
     Active Substance: INDAPAMIDE
  8. BELOC ZOK [Concomitant]
     Active Substance: METOPROLOL SUCCINATE

REACTIONS (1)
  - Polyarthritis [Recovering/Resolving]

NARRATIVE: CASE EVENT DATE: 202004
